FAERS Safety Report 14327832 (Version 1)
Quarter: 2017Q4

REPORT INFORMATION
  Report Type: Report from Study
  Country: US (occurrence: US)
  Receive Date: 20171227
  Receipt Date: 20171227
  Transmission Date: 20180321
  Serious: Yes (Other)
  Sender: FDA-Public Use
  Company Number: US-BAYER-2017-211029

PATIENT
  Age: 69 Year
  Sex: Male

DRUGS (2)
  1. NEXAVAR [Suspect]
     Active Substance: SORAFENIB
     Indication: HEPATOCELLULAR CARCINOMA
     Dosage: 200 MG, BID
     Route: 048
     Dates: start: 20171008, end: 20171017
  2. NEXAVAR [Suspect]
     Active Substance: SORAFENIB
     Indication: HEPATOCELLULAR CARCINOMA
     Dosage: 200 MG, BID
     Route: 048
     Dates: start: 20170922

REACTIONS (6)
  - Road traffic accident [None]
  - Joint dislocation [Not Recovered/Not Resolved]
  - Musculoskeletal pain [Recovered/Resolved]
  - Off label use [None]
  - Arrhythmia [None]
  - Intentional product use issue [None]

NARRATIVE: CASE EVENT DATE: 20171008
